FAERS Safety Report 7562341-9 (Version None)
Quarter: 2011Q2

REPORT INFORMATION
  Report Type: 
  Country: None (occurrence: None)
  Receive Date: 20110614
  Receipt Date: 20110531
  Transmission Date: 20111010
  Serious: Yes (Hospitalization)
  Sender: FDA-Public Use
  Company Number: 2011-1761

PATIENT
  Age: 33 Year
  Sex: Female
  Weight: 72 kg

DRUGS (2)
  1. SOMATULINE DEPOT [Suspect]
     Dosage: 90 MG (90 MG, 1 IN 1 M), SUBCUTANEOUS; 120 MG 9120 MG, 1 IN 1 M), SUBCUTANEOUS
     Route: 058
     Dates: start: 20100801, end: 20101101
  2. SOMATULINE DEPOT [Suspect]
     Dosage: 90 MG (90 MG, 1 IN 1 M), SUBCUTANEOUS; 120 MG 9120 MG, 1 IN 1 M), SUBCUTANEOUS
     Route: 058
     Dates: start: 20100501, end: 20100801

REACTIONS (4)
  - INJECTION SITE SWELLING [None]
  - PITUITARY TUMOUR [None]
  - NEOPLASM RECURRENCE [None]
  - HEADACHE [None]
